FAERS Safety Report 17209010 (Version 1)
Quarter: 2019Q4

REPORT INFORMATION
  Report Type: Spontaneous
  Country: US (occurrence: US)
  Receive Date: 20191227
  Receipt Date: 20191227
  Transmission Date: 20200122
  Serious: No
  Sender: FDA-Public Use
  Company Number: US-INDIVIOR LIMITED-INDV-121918-2019

PATIENT
  Age: 21 Year
  Sex: Male

DRUGS (1)
  1. SUBLOCADE [Suspect]
     Active Substance: BUPRENORPHINE
     Indication: DRUG DEPENDENCE
     Dosage: 300 MILLIGRAM, QMO (2 INJECTIONS)
     Route: 065
     Dates: start: 2019

REACTIONS (5)
  - Injection site irritation [Unknown]
  - Intentional removal of drug delivery system by patient [Recovered/Resolved]
  - Injection site erythema [Unknown]
  - Wrong technique in product usage process [Recovered/Resolved]
  - Injection site erosion [Unknown]

NARRATIVE: CASE EVENT DATE: 201909
